FAERS Safety Report 5425170-8 (Version None)
Quarter: 2007Q3

REPORT INFORMATION
  Report Type: 
  Country: None (occurrence: None)
  Receive Date: 20070824
  Receipt Date: 20070813
  Transmission Date: 20080115
  Serious: Yes (Hospitalization)
  Sender: FDA-Public Use
  Company Number: FR-GILEAD-2007-0013032

PATIENT
  Sex: Male
  Weight: 64 kg

DRUGS (8)
  1. TRUVADA [Suspect]
     Indication: HIV INFECTION
     Route: 048
     Dates: start: 20070731, end: 20070810
  2. KALETRA [Concomitant]
     Indication: HIV INFECTION
     Route: 048
     Dates: start: 20070731, end: 20070810
  3. FUZEON [Concomitant]
     Indication: HIV INFECTION
     Route: 058
     Dates: start: 20070731, end: 20070810
  4. BACTRIM [Concomitant]
     Indication: ANTIFUNGAL PROPHYLAXIS
     Route: 048
     Dates: start: 20070722
  5. LOVENOX [Concomitant]
     Indication: THROMBOSIS PROPHYLAXIS
     Route: 058
     Dates: start: 20070805
  6. VANCOMYCIN [Concomitant]
     Dates: start: 20070725, end: 20070808
  7. NEXIUM [Concomitant]
     Indication: OESOPHAGITIS
     Route: 048
     Dates: start: 20070723
  8. TRIFLUCAN [Concomitant]
     Indication: CANDIDIASIS
     Route: 048
     Dates: start: 20070720

REACTIONS (1)
  - CYTOLYTIC HEPATITIS [None]
